FAERS Safety Report 9862621 (Version 1)
Quarter: 2014Q1

REPORT INFORMATION
  Report Type: Spontaneous
  Country: US (occurrence: US)
  Receive Date: 20140203
  Receipt Date: 20140203
  Transmission Date: 20141002
  Serious: Yes (Death)
  Sender: FDA-Public Use
  Company Number: CHPA2014US001606

PATIENT
  Age: 51 Year
  Sex: Female

DRUGS (5)
  1. DEXTROMETHORPHAN HYDROBROMIDE [Suspect]
  2. MORPHINE [Suspect]
  3. DIAZEPAM [Suspect]
  4. PROMETHAZINE [Suspect]
  5. PAROXETINE [Suspect]

REACTIONS (1)
  - Intentional drug misuse [Fatal]
